FAERS Safety Report 8416220-5 (Version None)
Quarter: 2012Q2

REPORT INFORMATION
  Report Type: 
  Country: None (occurrence: None)
  Receive Date: 20120606
  Receipt Date: 20120530
  Transmission Date: 20120825
  Serious: Yes (Death, Hospitalization)
  Sender: FDA-Public Use
  Company Number: FR-ROCHE-1073480

PATIENT
  Age: 63 Year
  Sex: Male

DRUGS (3)
  1. AVASTIN [Suspect]
     Indication: COLORECTAL CANCER
     Dates: start: 20110428, end: 20110729
  2. INDAPAMIDE [Concomitant]
     Indication: HYPERTENSION
  3. VERAPAMIL [Concomitant]
     Indication: HYPERTENSION

REACTIONS (2)
  - HEPATIC CIRRHOSIS [None]
  - DISEASE PROGRESSION [None]
